FAERS Safety Report 11099805 (Version 1)
Quarter: 2015Q2

REPORT INFORMATION
  Report Type: Report from Study
  Country: BR (occurrence: BR)
  Receive Date: 20150508
  Receipt Date: 20150508
  Transmission Date: 20150821
  Serious: Yes (Other)
  Sender: FDA-Public Use
  Company Number: BR-EMD SERONO-8023756

PATIENT
  Age: 27 Year
  Sex: Female

DRUGS (3)
  1. REBIF [Suspect]
     Active Substance: INTERFERON BETA-1A
     Dates: start: 20150306, end: 20150424
  2. REBIF [Suspect]
     Active Substance: INTERFERON BETA-1A
     Indication: MULTIPLE SCLEROSIS
     Dates: start: 20141024
  3. PARACETAMOL [Concomitant]
     Active Substance: ACETAMINOPHEN
     Indication: PRODUCT USED FOR UNKNOWN INDICATION

REACTIONS (15)
  - Ocular icterus [Unknown]
  - Aspartate aminotransferase increased [Unknown]
  - Gamma-glutamyltransferase increased [Unknown]
  - Blood bilirubin increased [Unknown]
  - Pyrexia [Unknown]
  - Pain [Unknown]
  - Muscular weakness [Unknown]
  - Blood alkaline phosphatase increased [Unknown]
  - Tremor [Unknown]
  - Arthralgia [Unknown]
  - Chromaturia [Unknown]
  - Alanine aminotransferase increased [Unknown]
  - Headache [Unknown]
  - Bilirubin conjugated increased [Unknown]
  - Myalgia [Unknown]

NARRATIVE: CASE EVENT DATE: 20150415
